FAERS Safety Report 9312536 (Version 2)
Quarter: 2013Q2

REPORT INFORMATION
  Report Type: Spontaneous
  Country: CA (occurrence: None)
  Receive Date: 20130520
  Receipt Date: 20130603
  Transmission Date: 20140414
  Serious: Yes (Hospitalization)
  Sender: FDA-Public Use
  Company Number: AUR-APL-2013-04114

PATIENT
  Age: 52 Year
  Sex: Male
  Weight: 136.9 kg

DRUGS (2)
  1. RAMIPRIL [Suspect]
     Indication: BLOOD PRESSURE INCREASED
     Dates: start: 201211
  2. NITROGLYCERIN (GLYCERYL TRINITRATE) [Concomitant]

REACTIONS (5)
  - Drug ineffective [None]
  - Nausea [None]
  - Vomiting [None]
  - Gastric disorder [None]
  - Hypertension [None]
